FAERS Safety Report 6448020-X (Version None)
Quarter: 2009Q4

REPORT INFORMATION
  Report Type: 
  Country: None (occurrence: None)
  Receive Date: 20091120
  Receipt Date: 20091112
  Transmission Date: 20100525
  Serious: Yes (Hospitalization)
  Sender: FDA-Public Use
  Company Number: FR-ROCHE-668308

PATIENT
  Sex: Male

DRUGS (8)
  1. RIVOTRIL [Suspect]
     Indication: DRUG USE FOR UNKNOWN INDICATION
     Dosage: DOSE 20 DROPS THREE TIMES DAILY
     Route: 048
     Dates: end: 20090612
  2. RIVOTRIL [Suspect]
     Dosage: 4 MG DAILY, DOSE DECREASED
     Route: 048
     Dates: start: 20090612
  3. RIVOTRIL [Suspect]
     Dosage: DOSE 10 DROPS TWICE DAILY
     Route: 048
  4. NOZINAN [Suspect]
     Dosage: DOSE 100 DROPS THREE TIMES DAILY
     Route: 048
     Dates: end: 20090612
  5. NOZINAN [Suspect]
     Dosage: DOSE DECREASED
     Route: 048
     Dates: start: 20090612, end: 20090614
  6. LOXAPAC [Suspect]
     Dosage: 300 MG DAILY
     Route: 048
     Dates: start: 20090501, end: 20090612
  7. LOXAPAC [Suspect]
     Dosage: DOSE DECREASED
     Route: 048
     Dates: start: 20090612, end: 20090614
  8. DEPAKINE CHRONO [Suspect]
     Indication: CONVULSION
     Route: 048

REACTIONS (2)
  - PNEUMONIA ASPIRATION [None]
  - SOMNOLENCE [None]
